FAERS Safety Report 4931499-X (Version None)
Quarter: 2006Q1

REPORT INFORMATION
  Report Type: 
  Country: None (occurrence: None)
  Receive Date: 20060118
  Receipt Date: 20050923
  Transmission Date: 20060701
  Serious: Yes (Other)
  Sender: FDA-Public Use
  Company Number: US-JNJFOC-20050805175

PATIENT
  Age: 74 Year
  Sex: Female
  Weight: 57.1532 kg

DRUGS (2)
  1. DOXIL [Suspect]
     Indication: BREAST CANCER METASTATIC
     Dosage: 37.5 MG/M2, INTRAVENOUS ; 33.75 MG/M2, INTRAVENOUS
     Route: 042
     Dates: start: 20050620, end: 20050712
  2. DOXIL [Suspect]
     Indication: BREAST CANCER METASTATIC
     Dosage: 37.5 MG/M2, INTRAVENOUS ; 33.75 MG/M2, INTRAVENOUS
     Route: 042
     Dates: start: 20050818

REACTIONS (1)
  - RECALL PHENOMENON [None]
